FAERS Safety Report 7584081-2 (Version None)
Quarter: 2011Q2

REPORT INFORMATION
  Report Type: 
  Country: None (occurrence: None)
  Receive Date: 20110630
  Receipt Date: 20110622
  Transmission Date: 20111010
  Serious: Yes (Hospitalization)
  Sender: FDA-Public Use
  Company Number: JP-MERCK-1007USA02434

PATIENT
  Age: 42 Year
  Sex: Male
  Weight: 104 kg

DRUGS (10)
  1. ALLOZYM [Concomitant]
     Indication: GOUT
     Route: 048
  2. JANUVIA [Suspect]
     Indication: DIABETES MELLITUS
     Route: 048
     Dates: start: 20100619, end: 20100708
  3. GLUCOBAY [Concomitant]
     Indication: DIABETES MELLITUS
     Dosage: DOSAGE IS UNCERTAIN DURING A DAY
     Route: 048
     Dates: end: 20100709
  4. AMARYL [Concomitant]
     Indication: DIABETES MELLITUS
     Dosage: DAILY DOSAGE UNKNOWN
     Route: 048
     Dates: end: 20100709
  5. LANTUS [Concomitant]
     Dosage: UNIT: UNDER 1000 UNIT
     Route: 058
     Dates: end: 20100708
  6. OMEPRAZOLE [Concomitant]
     Route: 048
  7. LIVALO [Suspect]
     Indication: DYSLIPIDAEMIA
     Dosage: DAILY DOSAGE UNKNOWN
     Route: 048
     Dates: start: 20100101, end: 20100708
  8. BISOPROLOL FUMARATE [Concomitant]
     Indication: HYPERTENSION
     Route: 048
  9. CANDESARTAN CILEXETIL [Concomitant]
     Indication: HYPERTENSION
     Route: 048
  10. NORVASC [Concomitant]
     Indication: HYPERTENSION
     Route: 048

REACTIONS (2)
  - HEPATIC FUNCTION ABNORMAL [None]
  - LIVER DISORDER [None]
